FAERS Safety Report 8150858-8 (Version None)
Quarter: 2012Q1

REPORT INFORMATION
  Report Type: 
  Country: None (occurrence: None)
  Receive Date: 20120220
  Receipt Date: 20120207
  Transmission Date: 20120608
  Serious: Yes (Other)
  Sender: FDA-Public Use
  Company Number: AU-AMGEN-AUSSP2012010058

PATIENT
  Age: 50 Year
  Sex: Male

DRUGS (11)
  1. CELECOXIB [Concomitant]
     Indication: RHEUMATOID ARTHRITIS
     Dosage: 200 MG, 1X/DAY
  2. ETANERCEPT [Suspect]
     Indication: RHEUMATOID ARTHRITIS
     Dosage: 50 MG, WEEKLY
     Dates: start: 20060201
  3. ADALIMUMAB [Suspect]
     Dosage: UNK
  4. METHOTREXATE [Concomitant]
     Indication: RHEUMATOID ARTHRITIS
     Dosage: 20 MG, WEEKLY
  5. LEFLUNOMIDE [Concomitant]
     Indication: RHEUMATOID ARTHRITIS
     Dosage: 10 MG, 1X/DAY
  6. PREDNISONE [Concomitant]
     Dosage: 20 MG, 1X/DAY
  7. HYDROXYCHLOROQUINE SULFATE [Concomitant]
     Indication: RHEUMATOID ARTHRITIS
     Dosage: 400 MG, 1X/DAY
  8. PREDNISONE [Concomitant]
     Indication: RHEUMATOID ARTHRITIS
     Dosage: 10 MG, 1X/DAY
  9. ETANERCEPT [Suspect]
     Dosage: 10 MG, WEEKLY
  10. PREDNISONE [Concomitant]
     Dosage: 5 MG, 1X/DAY
  11. METHOTREXATE [Concomitant]
     Dosage: 10 MG, WEEKLY

REACTIONS (1)
  - SARCOIDOSIS [None]
